FAERS Safety Report 7101316-0 (Version None)
Quarter: 2010Q4

REPORT INFORMATION
  Report Type: 
  Country: None (occurrence: None)
  Receive Date: 20101105
  Receipt Date: 20101026
  Transmission Date: 20110411
  Serious: Yes (Other)
  Sender: FDA-Public Use
  Company Number: 020525

PATIENT
  Age: 43 Year
  Sex: Female

DRUGS (7)
  1. KEPPRA [Suspect]
     Dosage: (750 MG BID)
     Dates: start: 20100101, end: 20101018
  2. TOPAMAX [Concomitant]
  3. PLAVIX [Concomitant]
  4. CLONOPIN [Concomitant]
  5. ASPIRIN [Concomitant]
  6. ZOLOFT [Concomitant]
  7. HYDROCHLOROTHIAZIDE [Concomitant]

REACTIONS (5)
  - CONDITION AGGRAVATED [None]
  - HYPOAESTHESIA [None]
  - MULTIPLE SCLEROSIS [None]
  - PARAESTHESIA [None]
  - VISION BLURRED [None]
